FAERS Safety Report 9034241 (Version 1)
Quarter: 2013Q1

REPORT INFORMATION
  Report Type: Spontaneous
  Country: US (occurrence: US)
  Receive Date: 20130128
  Receipt Date: 20130128
  Transmission Date: 20140127
  Serious: Yes (Other)
  Sender: FDA-Public Use
  Company Number: US-AMGEN-KDL099121

PATIENT
  Age: 57 Year
  Sex: Male

DRUGS (14)
  1. ENBREL [Suspect]
     Indication: PSORIATIC ARTHROPATHY
     Dosage: 25 MG, 2 TIMES/WK
     Route: 058
     Dates: start: 20040420
  2. METHOTREXATE [Suspect]
     Dosage: 25 MG, QWK
  3. VALPROATE SEMISODIUM [Concomitant]
  4. FOSINOPRIL SODIUM [Concomitant]
  5. CYCLOBENZAPRINE HYDROCHLORIDE [Concomitant]
  6. PAROXETINE HYDROCHLORIDE [Concomitant]
  7. ZOLPIDEM TARTRATE [Concomitant]
  8. SIMVASTATIN [Concomitant]
  9. TERAZOSIN HYDROCHLORIDE [Concomitant]
  10. RISPERIDONE [Concomitant]
  11. NAPROXEN [Concomitant]
  12. FOLIC ACID [Concomitant]
  13. QUETIAPINE [Concomitant]
  14. CORTICOSTEROID NOS [Concomitant]
     Dosage: UNK UNK, UNK
     Route: 061

REACTIONS (1)
  - Herpes zoster [Recovering/Resolving]
